FAERS Safety Report 4827753-2 (Version None)
Quarter: 2005Q4

REPORT INFORMATION
  Report Type: 
  Country: None (occurrence: None)
  Receive Date: 20051110
  Receipt Date: 20051028
  Transmission Date: 20060501
  Serious: No
  Sender: FDA-Public Use
  Company Number: US016298

PATIENT
  Age: 21 Month
  Sex: Male
  Weight: 10.4327 kg

DRUGS (1)
  1. ACTIQ [Suspect]
     Dosage: 800 UG ONCE BUCCAL
     Route: 002
     Dates: start: 20051028, end: 20051028

REACTIONS (4)
  - ACCIDENTAL DRUG INTAKE BY CHILD [None]
  - ACCIDENTAL EXPOSURE [None]
  - COORDINATION ABNORMAL [None]
  - SOMNOLENCE [None]
